FAERS Safety Report 8385801-X (Version None)
Quarter: 2012Q2

REPORT INFORMATION
  Report Type: 
  Country: None (occurrence: None)
  Receive Date: 20120523
  Receipt Date: 20120511
  Transmission Date: 20120825
  Serious: Yes (Other)
  Sender: FDA-Public Use
  Company Number: DSA_57067_2012

PATIENT
  Age: 58 Year

DRUGS (1)
  1. DILTIAZEM HYDROCHLORIDE [Suspect]
     Indication: HEART RATE INCREASED
     Dosage: (DF ORAL)
     Route: 048
     Dates: start: 20100607, end: 20100607

REACTIONS (1)
  - ANAPHYLACTIC SHOCK [None]
